FAERS Safety Report 21855029 (Version 2)
Quarter: 2023Q1

REPORT INFORMATION
  Report Type: Spontaneous
  Country: FR (occurrence: FR)
  Receive Date: 20230112
  Receipt Date: 20230304
  Transmission Date: 20230418
  Serious: Yes (Other)
  Sender: FDA-Public Use
  Company Number: None

PATIENT
  Age: 11 Year
  Sex: Female
  Weight: 74 kg

DRUGS (2)
  1. DABRAFENIB [Suspect]
     Active Substance: DABRAFENIB
     Indication: Optic glioma
     Dosage: 300 MG, QD (150 MG LE MATIN ET LE SOIR)
     Route: 048
     Dates: start: 20221122, end: 20221228
  2. TRAMETINIB [Suspect]
     Active Substance: TRAMETINIB
     Indication: Optic glioma
     Dosage: 2 MG, QD (2 MG LE MATIN)
     Route: 048
     Dates: start: 20221122, end: 20221228

REACTIONS (2)
  - Ejection fraction decreased [Not Recovered/Not Resolved]
  - Systolic dysfunction [Not Recovered/Not Resolved]

NARRATIVE: CASE EVENT DATE: 20221228
